FAERS Safety Report 4349189-3 (Version None)
Quarter: 2004Q2

REPORT INFORMATION
  Report Type: 
  Country: None (occurrence: None)
  Receive Date: 20040428
  Receipt Date: 20040316
  Transmission Date: 20050107
  Serious: Yes (Other)
  Sender: FDA-Public Use
  Company Number: PHEH2004US03091

PATIENT
  Age: 79 Year
  Sex: Female

DRUGS (3)
  1. RESCULA [Suspect]
     Indication: GLAUCOMA
     Dosage: 1 GTT, BID
     Dates: start: 20010108, end: 20031218
  2. TIMOLOL MALEATE [Concomitant]
     Indication: GLAUCOMA
     Dosage: UNK, BID
     Dates: start: 19930325
  3. ALPHAGAN [Concomitant]
     Indication: GLAUCOMA
     Dosage: UNK, BID
     Dates: start: 19990719

REACTIONS (5)
  - ASTIGMATISM [None]
  - CATARACT [None]
  - CORNEAL OPACITY [None]
  - DISEASE PROGRESSION [None]
  - VISUAL ACUITY REDUCED [None]
